FAERS Safety Report 7324628-4 (Version None)
Quarter: 2011Q1

REPORT INFORMATION
  Report Type: 
  Country: None (occurrence: None)
  Receive Date: 20110218
  Receipt Date: 20110203
  Transmission Date: 20110831
  Serious: Yes (Other)
  Sender: FDA-Public Use
  Company Number: AUR-APL-2011-00457

PATIENT
  Age: 54 Year
  Sex: Female
  Weight: 43.08 kg

DRUGS (8)
  1. GEODON [Suspect]
     Indication: SCHIZOAFFECTIVE DISORDER
     Dosage: 80 MG - BID
  2. ABILIFY [Suspect]
     Indication: SCHIZOAFFECTIVE DISORDER
  3. ZYPREXA [Suspect]
     Indication: SCHIZOAFFECTIVE DISORDER
  4. PRIMIDONE [Concomitant]
  5. DOMPERIDONE [Suspect]
     Dosage: 10 MG
  6. WELLBUTRIN [Concomitant]
  7. TOPAMAX [Concomitant]
  8. RISPERDONE [Suspect]
     Indication: SCHIZOAFFECTIVE DISORDER

REACTIONS (6)
  - GASTRITIS [None]
  - FLATULENCE [None]
  - WEIGHT DECREASED [None]
  - DYSURIA [None]
  - ULCER [None]
  - URINARY RETENTION [None]
